FAERS Safety Report 5808888-4 (Version None)
Quarter: 2008Q3

REPORT INFORMATION
  Report Type: 
  Country: None (occurrence: None)
  Receive Date: 20080714
  Receipt Date: 20080703
  Transmission Date: 20090109
  Serious: Yes (Hospitalization)
  Sender: FDA-Public Use
  Company Number: DE-MERCK-0807DEU00035

PATIENT
  Age: 71 Year
  Sex: Male
  Weight: 72 kg

DRUGS (6)
  1. JANUVIA [Suspect]
     Indication: DIABETES MELLITUS
     Route: 048
     Dates: end: 20080301
  2. JANUVIA [Suspect]
     Route: 048
     Dates: start: 20080301, end: 20080312
  3. METFORMIN [Concomitant]
     Indication: DIABETES MELLITUS
     Route: 065
  4. METOPROLOL SUCCINATE [Concomitant]
     Route: 065
  5. CANDESARTAN CILEXETIL [Concomitant]
     Route: 065
  6. SIMVASTATIN [Concomitant]
     Route: 065

REACTIONS (4)
  - ANOREXIA [None]
  - AORTIC ANEURYSM [None]
  - NAUSEA [None]
  - OVERDOSE [None]
